FAERS Safety Report 8394571-0 (Version None)
Quarter: 2012Q2

REPORT INFORMATION
  Report Type: 
  Country: None (occurrence: None)
  Receive Date: 20120530
  Receipt Date: 20120522
  Transmission Date: 20120825
  Serious: No
  Sender: FDA-Public Use
  Company Number: US-BAYER-2012-042254

PATIENT
  Sex: Female
  Weight: 66.667 kg

DRUGS (6)
  1. IPRATROPIUM BROMIDE [Concomitant]
  2. METAXALONE [Concomitant]
     Dosage: 800 MG, UNK
  3. GADAVIST [Suspect]
     Indication: NUCLEAR MAGNETIC RESONANCE IMAGING BRAIN
     Dosage: 7 ML, ONCE
     Route: 042
     Dates: start: 20120420
  4. FLUTICASONE FUROATE [Concomitant]
     Dosage: 50 MG, UNK
  5. NORTRIPTYLINE HCL [Concomitant]
     Dosage: 10 MG, UNK
  6. DIAZEPAM [Concomitant]
     Dosage: 5 MG, UNK

REACTIONS (3)
  - THROAT IRRITATION [None]
  - URTICARIA [None]
  - PRURITUS [None]
